FAERS Safety Report 8558634 (Version 2)
Quarter: 2015Q1

REPORT INFORMATION
  Report Type: Report from Study
  Country: US (occurrence: US)
  Receive Date: 20120511
  Receipt Date: 20150331
  Transmission Date: 20150721
  Serious: Yes (Other)
  Sender: FDA-Public Use
  Company Number: US-ROCHE-1065512

PATIENT
  Sex: Female

DRUGS (3)
  1. PEGASYS [Suspect]
     Active Substance: PEGINTERFERON ALFA-2A
     Route: 058
  2. PEGASYS [Suspect]
     Active Substance: PEGINTERFERON ALFA-2A
     Indication: ACUTE HEPATITIS C
     Dosage: PEGASYS 180MCG/0.5ML
     Route: 058
  3. COPEGUS [Suspect]
     Active Substance: RIBAVIRIN
     Indication: ACUTE HEPATITIS C
     Route: 065

REACTIONS (1)
  - Respiratory distress [Unknown]
